FAERS Safety Report 16111712 (Version 1)
Quarter: 2019Q1

REPORT INFORMATION
  Report Type: Spontaneous
  Country: FR (occurrence: FR)
  Receive Date: 20190325
  Receipt Date: 20190325
  Transmission Date: 20190418
  Serious: Yes (Death, Hospitalization, Other)
  Sender: FDA-Public Use
  Company Number: FR-SA-2019SA015739

PATIENT
  Age: 79 Year
  Sex: Male
  Weight: 56 kg

DRUGS (17)
  1. DEXCHLORPHENIRAMINE MALEATE. [Suspect]
     Active Substance: DEXCHLORPHENIRAMINE MALEATE
     Indication: PROPHYLAXIS
     Dosage: 5 MG, QW
     Route: 042
     Dates: start: 20181203, end: 20181219
  2. ONDANSETRON [Suspect]
     Active Substance: ONDANSETRON
     Indication: PROPHYLAXIS OF NAUSEA AND VOMITING
     Dosage: 8 MG, QW
     Route: 042
     Dates: start: 20181203, end: 20181219
  3. TAMSULOSINE [TAMSULOSIN] [Concomitant]
  4. SIMVASTATINE [Concomitant]
     Active Substance: SIMVASTATIN
  5. PARACETAMOL [Concomitant]
     Active Substance: ACETAMINOPHEN
  6. CARBOPLATIN. [Suspect]
     Active Substance: CARBOPLATIN
     Indication: OESOPHAGEAL SQUAMOUS CELL CARCINOMA METASTATIC
     Dosage: 408.35 MG, QW
     Route: 041
     Dates: start: 20181203, end: 20181219
  7. HEPARIN SODIUM. [Suspect]
     Active Substance: HEPARIN SODIUM
     Indication: ATRIAL FIBRILLATION
     Dosage: 25000 IU, QD
     Route: 042
     Dates: start: 20181222, end: 20181225
  8. TOUJEO [Concomitant]
     Active Substance: INSULIN GLARGINE
  9. METFORMINE [METFORMIN] [Concomitant]
     Active Substance: METFORMIN HYDROCHLORIDE
  10. AMLODIPINE [Concomitant]
     Active Substance: AMLODIPINE BESYLATE
  11. EMEND [Suspect]
     Active Substance: APREPITANT
     Indication: PROPHYLAXIS OF NAUSEA AND VOMITING
     Dosage: 1 DF, QW
     Route: 048
     Dates: start: 20181203, end: 20181219
  12. METHYLPREDNISOLONE. [Suspect]
     Active Substance: METHYLPREDNISOLONE
     Indication: PREMEDICATION
     Dosage: 55 MG, QW
     Route: 041
     Dates: start: 20181203, end: 20181219
  13. RANITIDINE HYDROCHLORIDE. [Suspect]
     Active Substance: RANITIDINE HYDROCHLORIDE
     Indication: PREMEDICATION
     Dosage: 50 MG, QW
     Route: 041
     Dates: start: 20181203, end: 20181219
  14. ESIDREX [Concomitant]
     Active Substance: HYDROCHLOROTHIAZIDE
  15. PERINDOPRIL [Concomitant]
     Active Substance: PERINDOPRIL
  16. PACLITAXEL. [Suspect]
     Active Substance: PACLITAXEL
     Indication: OESOPHAGEAL SQUAMOUS CELL CARCINOMA METASTATIC
     Dosage: 129.6 MG, QW
     Route: 041
     Dates: start: 20181203, end: 20181219
  17. HUMALOG [Concomitant]
     Active Substance: INSULIN LISPRO

REACTIONS (3)
  - Anaemia [Fatal]
  - Intestinal ischaemia [Fatal]
  - Thrombocytopenia [Fatal]

NARRATIVE: CASE EVENT DATE: 20181219
